FAERS Safety Report 5215022-0 (Version None)
Quarter: 2007Q1

REPORT INFORMATION
  Report Type: 
  Country: None (occurrence: None)
  Receive Date: 20070117
  Receipt Date: 20070102
  Transmission Date: 20070707
  Serious: Yes (Other)
  Sender: FDA-Public Use
  Company Number: 2007RR-05056

PATIENT
  Age: 58 Year
  Sex: Male
  Weight: 80 kg

DRUGS (2)
  1. IBUPROFEN [Suspect]
     Indication: ARTHRALGIA
     Dosage: 400 MG, TID, ORAL
     Route: 048
     Dates: start: 20060314, end: 20060911
  2. AMLODIPINE MALEATE (AMLODIPINE) [Concomitant]

REACTIONS (1)
  - RENAL FAILURE ACUTE [None]
